FAERS Safety Report 7775719-5 (Version None)
Quarter: 2011Q3

REPORT INFORMATION
  Report Type: 
  Country: None (occurrence: None)
  Receive Date: 20110923
  Receipt Date: 20110914
  Transmission Date: 20111222
  Serious: Yes (Hospitalization)
  Sender: FDA-Public Use
  Company Number: FR-GLAXOSMITHKLINE-B0747238A

PATIENT
  Sex: Female

DRUGS (9)
  1. VALACYCLOVIR HYDROCHLORIDE [Suspect]
     Indication: HERPES ZOSTER
     Dosage: 200MG THREE TIMES PER DAY
     Route: 048
     Dates: start: 20110522, end: 20110530
  2. FORLAX [Concomitant]
     Indication: CONSTIPATION
     Route: 048
  3. NEXIUM [Concomitant]
     Indication: PROPHYLAXIS AGAINST GASTROINTESTINAL ULCER
     Dosage: 20MG PER DAY
     Route: 048
     Dates: end: 20110601
  4. ATACAND [Concomitant]
     Indication: HYPERTENSION
     Dosage: 40MG PER DAY
     Route: 048
  5. ALENDRONATE SODIUM [Concomitant]
     Indication: OSTEOPOROSIS
     Route: 048
     Dates: end: 20110630
  6. PRAXILENE [Concomitant]
     Indication: COGNITIVE DISORDER
     Route: 048
     Dates: end: 20110601
  7. ACETAMINOPHEN [Concomitant]
     Indication: PAIN
     Route: 048
  8. JANUMET [Concomitant]
     Indication: TYPE 2 DIABETES MELLITUS
     Route: 048
     Dates: end: 20110530
  9. DIFRAREL [Concomitant]
     Route: 048
     Dates: end: 20110601

REACTIONS (4)
  - BALANCE DISORDER [None]
  - CONFUSIONAL STATE [None]
  - HALLUCINATION, VISUAL [None]
  - FALL [None]
